FAERS Safety Report 9694661 (Version 1)
Quarter: 2013Q4

REPORT INFORMATION
  Report Type: Spontaneous
  Country: US (occurrence: US)
  Receive Date: 20131119
  Receipt Date: 20131119
  Transmission Date: 20140711
  Serious: Yes (Death)
  Sender: FDA-Public Use
  Company Number: US-JNJFOC-20131109204

PATIENT
  Age: 47 Year
  Sex: Male
  Weight: 136.08 kg

DRUGS (2)
  1. TYLENOL EXTRA STRENGTH [Suspect]
     Route: 048
  2. TYLENOL EXTRA STRENGTH [Suspect]
     Indication: HEADACHE
     Route: 048
     Dates: end: 20030601

REACTIONS (1)
  - Arrhythmia [Fatal]
